FAERS Safety Report 4408439-5 (Version None)
Quarter: 2004Q3

REPORT INFORMATION
  Report Type: 
  Country: None (occurrence: None)
  Receive Date: 20040726
  Receipt Date: 20040726
  Transmission Date: 20050211
  Serious: Yes (Other)
  Sender: FDA-Public Use
  Company Number: None

PATIENT
  Age: 64 Year
  Sex: Male

DRUGS (2)
  1. PULMICORT [Suspect]
     Indication: ASTHMA
     Dosage: 3 BREATHS BID QD
     Route: 055
     Dates: start: 20030606
  2. PULMICORT [Suspect]
     Indication: CHRONIC OBSTRUCTIVE AIRWAYS DISEASE
     Dosage: 3 BREATHS BID QD
     Route: 055
     Dates: start: 20030606

REACTIONS (1)
  - OESOPHAGEAL CANDIDIASIS [None]
